FAERS Safety Report 12879729 (Version 1)
Quarter: 2016Q4

REPORT INFORMATION
  Report Type: Spontaneous
  Country: US (occurrence: US)
  Receive Date: 20161025
  Receipt Date: 20161025
  Transmission Date: 20170207
  Serious: No
  Sender: FDA-Public Use
  Company Number: US-DRREDDYS-DRL/USA/16/0079646

PATIENT
  Age: 74 Year
  Sex: Female
  Weight: 92.9 kg

DRUGS (1)
  1. RANITIDINE. [Suspect]
     Active Substance: RANITIDINE
     Indication: PRODUCT USED FOR UNKNOWN INDICATION
     Route: 048
     Dates: start: 20160502, end: 20160503

REACTIONS (3)
  - Rash [Unknown]
  - Pruritus generalised [Unknown]
  - Drug hypersensitivity [Unknown]
